FAERS Safety Report 20817873 (Version 1)
Quarter: 2022Q2

REPORT INFORMATION
  Report Type: Spontaneous
  Country: US (occurrence: US)
  Receive Date: 20220512
  Receipt Date: 20220512
  Transmission Date: 20220721
  Serious: Yes (Other)
  Sender: FDA-Public Use
  Company Number: US-TEVA-2022-US-2036471

PATIENT
  Sex: Male

DRUGS (1)
  1. POTASSIUM CITRATE [Suspect]
     Active Substance: POTASSIUM CITRATE
     Indication: Nephrolithiasis
     Dosage: 30 MILLIEQUIVALENTS DAILY; 10 MEQ ER TABLETS, TAKE ONE TABLET BY MOUTH THREE TIMES DAILY
     Route: 048

REACTIONS (5)
  - Dyspepsia [Unknown]
  - Product physical issue [Unknown]
  - Product use complaint [Unknown]
  - Dyspnoea [Unknown]
  - Pain [Unknown]
